FAERS Safety Report 8209493-5 (Version None)
Quarter: 2012Q1

REPORT INFORMATION
  Report Type: 
  Country: None (occurrence: None)
  Receive Date: 20120314
  Receipt Date: 20120306
  Transmission Date: 20120608
  Serious: Yes (Other)
  Sender: FDA-Public Use
  Company Number: JP-VERTEX PHARMACEUTICALS INC.-AE-2012-003431

PATIENT
  Age: 62 Year
  Sex: Male

DRUGS (4)
  1. TELAVIC (TELAPREVIR) [Suspect]
     Indication: HEPATITIS C
     Route: 048
     Dates: start: 20120120, end: 20120227
  2. RIBAVIRIN [Concomitant]
     Indication: HEPATITIS C
     Route: 048
     Dates: start: 20120120, end: 20120127
  3. LOXOPROFEN [Concomitant]
     Route: 048
     Dates: start: 20120120, end: 20120127
  4. PEGASYS [Concomitant]
     Indication: HEPATITIS C
     Route: 051

REACTIONS (3)
  - VOMITING [None]
  - PLATELET COUNT DECREASED [None]
  - DECREASED APPETITE [None]
